FAERS Safety Report 4354623-9 (Version None)
Quarter: 2004Q2

REPORT INFORMATION
  Report Type: 
  Country: None (occurrence: None)
  Receive Date: 20040506
  Receipt Date: 20040506
  Transmission Date: 20050107
  Serious: Yes (Other)
  Sender: FDA-Public Use
  Company Number: None

PATIENT
  Age: 35 Year
  Sex: Female

DRUGS (2)
  1. VANCOMYCIN [Suspect]
     Indication: BRAIN ABSCESS
     Dosage: 1.5 GM IV Q 12 HR
     Route: 042
     Dates: start: 20040330
  2. VANCOMYCIN [Suspect]
     Indication: BRAIN ABSCESS
     Dosage: 1.5 GM IV Q 12 HR
     Route: 042
     Dates: start: 20040423

REACTIONS (5)
  - ARTHRALGIA [None]
  - ARTHROPATHY [None]
  - FEELING COLD [None]
  - MUSCULOSKELETAL STIFFNESS [None]
  - MYALGIA [None]
